FAERS Safety Report 8366748-1 (Version None)
Quarter: 2012Q2

REPORT INFORMATION
  Report Type: 
  Country: None (occurrence: None)
  Receive Date: 20120517
  Receipt Date: 20120507
  Transmission Date: 20120825
  Serious: Yes (Life-Threatening, Hospitalization)
  Sender: FDA-Public Use
  Company Number: JP-JNJFOC-20120509765

PATIENT
  Age: 17 Year
  Sex: Male

DRUGS (4)
  1. ASACOL [Concomitant]
     Route: 048
  2. CEFAZOLIN SODIUM [Concomitant]
     Route: 048
  3. REMICADE [Suspect]
     Dosage: THE PATIENT HAD RECEIVED 4 INFUSIONS
     Route: 042
     Dates: start: 20120414
  4. REMICADE [Suspect]
     Indication: COLITIS ULCERATIVE
     Route: 042
     Dates: start: 20120107

REACTIONS (1)
  - PNEUMONIA [None]
